FAERS Safety Report 12624471 (Version 1)
Quarter: 2016Q3

REPORT INFORMATION
  Report Type: Other
  Country: US (occurrence: US)
  Receive Date: 20160805
  Receipt Date: 20160805
  Transmission Date: 20161109
  Serious: Yes (Hospitalization)
  Sender: FDA-Public Use
  Company Number: US-NOVEL LABORATORIES, INC-2016-03357

PATIENT
  Age: 84 Year
  Sex: Male
  Weight: 60 kg

DRUGS (16)
  1. VORICONAZOLE. [Suspect]
     Active Substance: VORICONAZOLE
     Indication: PHAEHYPHOMYCOSIS
     Dosage: 2 DOSES
     Route: 042
  2. VORICONAZOLE. [Interacting]
     Active Substance: VORICONAZOLE
     Route: 042
  3. VORICONAZOLE. [Interacting]
     Active Substance: VORICONAZOLE
     Route: 042
  4. VORICONAZOLE. [Interacting]
     Active Substance: VORICONAZOLE
     Route: 042
  5. DEXAMETHASONE. [Interacting]
     Active Substance: DEXAMETHASONE
     Indication: BRAIN OEDEMA
     Route: 048
  6. DEXAMETHASONE. [Interacting]
     Active Substance: DEXAMETHASONE
     Route: 048
  7. DEXAMETHASONE. [Interacting]
     Active Substance: DEXAMETHASONE
     Route: 048
  8. VORICONAZOLE. [Interacting]
     Active Substance: VORICONAZOLE
     Route: 048
  9. VORICONAZOLE. [Interacting]
     Active Substance: VORICONAZOLE
     Route: 042
  10. VORICONAZOLE. [Interacting]
     Active Substance: VORICONAZOLE
     Route: 048
  11. METRONIDAZOLE. [Concomitant]
     Active Substance: METRONIDAZOLE
     Indication: ASPIRATION
     Route: 065
  12. DEXAMETHASONE. [Interacting]
     Active Substance: DEXAMETHASONE
     Route: 048
  13. VANCOMYCIN [Concomitant]
     Active Substance: VANCOMYCIN
     Indication: ASPIRATION
     Route: 065
  14. DEXAMETHASONE. [Interacting]
     Active Substance: DEXAMETHASONE
     Route: 048
  15. CEFEPIME [Concomitant]
     Active Substance: CEFEPIME HYDROCHLORIDE
     Indication: ASPIRATION
     Route: 065
  16. VORICONAZOLE. [Interacting]
     Active Substance: VORICONAZOLE
     Route: 048

REACTIONS (4)
  - Drug level decreased [Recovering/Resolving]
  - Drug interaction [Unknown]
  - Hypophagia [Unknown]
  - Cognitive disorder [Recovering/Resolving]
